FAERS Safety Report 11263840 (Version 1)
Quarter: 2015Q3

REPORT INFORMATION
  Report Type: Spontaneous
  Country: US (occurrence: US)
  Receive Date: 20150713
  Receipt Date: 20150713
  Transmission Date: 20151125
  Serious: No
  Sender: FDA-Public Use
  Company Number: US-JNJFOC-20150613988

PATIENT
  Sex: Male
  Weight: 101 kg

DRUGS (3)
  1. DEXRAZOXANE. [Suspect]
     Active Substance: DEXRAZOXANE
     Indication: LIPOSARCOMA
     Route: 065
     Dates: start: 201402, end: 20141006
  2. DACARBAZINE. [Suspect]
     Active Substance: DACARBAZINE
     Indication: LIPOSARCOMA
     Route: 065
     Dates: start: 201402, end: 20141006
  3. DOXORUBICIN HYDROCHLORIDE. [Suspect]
     Active Substance: DOXORUBICIN HYDROCHLORIDE
     Indication: LIPOSARCOMA
     Route: 042
     Dates: start: 201402, end: 20141006

REACTIONS (1)
  - Drug effect incomplete [Unknown]
